FAERS Safety Report 6910664-6 (Version None)
Quarter: 2010Q3

REPORT INFORMATION
  Report Type: 
  Country: None (occurrence: None)
  Receive Date: 20100806
  Receipt Date: 20100727
  Transmission Date: 20110219
  Serious: Yes (Other)
  Sender: FDA-Public Use
  Company Number: FR-ROCHE-718218

PATIENT
  Sex: Female

DRUGS (8)
  1. AVASTIN [Suspect]
     Dosage: STRENGTH: 25 MG/ML, DAY 1 AND 15 PER CYCLE
     Route: 042
     Dates: start: 20091119, end: 20100211
  2. AVASTIN [Suspect]
     Route: 042
     Dates: start: 20100311, end: 20100311
  3. TAXOL [Suspect]
     Dosage: STRENGTH: 6 MG/ML, DAYS 1, 8, 15 PER CYCLE
     Route: 042
     Dates: start: 20091119, end: 20100211
  4. TAXOL [Suspect]
     Route: 042
     Dates: start: 20100311, end: 20100311
  5. ZOPHREN [Concomitant]
     Route: 042
  6. METHYLPREDNISOLONE [Concomitant]
     Route: 042
  7. POLARAMINE [Concomitant]
     Route: 042
  8. RANITIDINE HCL [Concomitant]
     Route: 042

REACTIONS (1)
  - EPILEPSY [None]
